FAERS Safety Report 23195767 (Version 2)
Quarter: 2024Q2

REPORT INFORMATION
  Report Type: Report from Study
  Country: US (occurrence: US)
  Receive Date: 20231117
  Receipt Date: 20240422
  Transmission Date: 20240717
  Serious: Yes (Other)
  Sender: FDA-Public Use
  Company Number: US-002147023-NVSC2023US242770

PATIENT
  Sex: Female

DRUGS (2)
  1. COSENTYX [Suspect]
     Active Substance: SECUKINUMAB
     Indication: Ankylosing spondylitis
     Dosage: UNK
     Route: 065
  2. CELEBREX [Concomitant]
     Active Substance: CELECOXIB
     Indication: Product used for unknown indication
     Route: 065

REACTIONS (11)
  - Ankylosing spondylitis [Unknown]
  - Arthralgia [Unknown]
  - Joint stiffness [Unknown]
  - Neck pain [Unknown]
  - Back pain [Unknown]
  - Tenderness [Unknown]
  - Headache [Unknown]
  - Gastritis [Unknown]
  - Musculoskeletal stiffness [Unknown]
  - Middle insomnia [Unknown]
  - Therapeutic product effect incomplete [Unknown]
